FAERS Safety Report 8286636-9 (Version None)
Quarter: 2012Q2

REPORT INFORMATION
  Report Type: 
  Country: None (occurrence: None)
  Receive Date: 20120416
  Receipt Date: 20120407
  Transmission Date: 20120825
  Serious: Yes (Hospitalization)
  Sender: FDA-Public Use
  Company Number: US-JNJFOC-20120403802

PATIENT
  Age: 57 Year
  Sex: Female
  Weight: 78.5 kg

DRUGS (4)
  1. ACETAMINOPHEN [Suspect]
     Route: 048
  2. QUETIAPINE [Suspect]
     Indication: PRODUCT USED FOR UNKNOWN INDICATION
     Route: 048
  3. OXYCODONE HCL [Suspect]
     Indication: PRODUCT USED FOR UNKNOWN INDICATION
     Route: 048
  4. ACETAMINOPHEN [Suspect]
     Indication: PRODUCT USED FOR UNKNOWN INDICATION
     Route: 048

REACTIONS (2)
  - LOSS OF CONSCIOUSNESS [None]
  - OVERDOSE [None]
